FAERS Safety Report 6713672-3 (Version None)
Quarter: 2010Q2

REPORT INFORMATION
  Report Type: 
  Country: None (occurrence: None)
  Receive Date: 20100506
  Receipt Date: 20100427
  Transmission Date: 20101027
  Serious: Yes (Other)
  Sender: FDA-Public Use
  Company Number: US-JNJFOC-20100500008

PATIENT
  Age: 40 Year
  Sex: Female

DRUGS (2)
  1. TERAZOL 1 [Suspect]
     Indication: VULVOVAGINAL MYCOTIC INFECTION
     Route: 067
  2. DIFLUCAN [Concomitant]
     Indication: INFECTION
     Route: 048

REACTIONS (4)
  - MYALGIA [None]
  - NAUSEA [None]
  - PYREXIA [None]
  - WHITE BLOOD CELL COUNT INCREASED [None]
